FAERS Safety Report 18530903 (Version 1)
Quarter: 2020Q4

REPORT INFORMATION
  Report Type: Spontaneous
  Country: US (occurrence: US)
  Receive Date: 20201121
  Receipt Date: 20201121
  Transmission Date: 20210114
  Serious: No
  Sender: FDA-Public Use
  Company Number: US-009507513-2011USA008676

PATIENT
  Age: 34 Year
  Sex: Female

DRUGS (1)
  1. GANIRELIX ACETATE INJECTION [Suspect]
     Active Substance: GANIRELIX ACETATE
     Indication: PREVENTION OF PREMATURE OVULATION
     Dosage: 250 MICROGRAM
     Route: 058
     Dates: start: 20200312, end: 20200316

REACTIONS (3)
  - Pain [Recovered/Resolved]
  - Needle issue [Unknown]
  - Poor quality device used [Unknown]

NARRATIVE: CASE EVENT DATE: 202003
